FAERS Safety Report 4349956-6 (Version None)
Quarter: 2004Q2

REPORT INFORMATION
  Report Type: 
  Country: None (occurrence: None)
  Receive Date: 20040426
  Receipt Date: 20040414
  Transmission Date: 20050107
  Serious: Yes (Other)
  Sender: FDA-Public Use
  Company Number: 2004-04-0715

PATIENT
  Age: 50 Year
  Sex: Male

DRUGS (4)
  1. CLARITIN [Suspect]
     Indication: SINUS HEADACHE
     Dosage: 3 TABLETS ORAL
     Route: 048
     Dates: start: 20040414, end: 20040414
  2. COREG [Concomitant]
  3. CLONIDINE HCL [Concomitant]
  4. ALTACE [Concomitant]

REACTIONS (2)
  - DISORIENTATION [None]
  - FATIGUE [None]
